FAERS Safety Report 13026365 (Version 4)
Quarter: 2017Q2

REPORT INFORMATION
  Report Type: Report from Study
  Country: JP (occurrence: JP)
  Receive Date: 20161214
  Receipt Date: 20170417
  Transmission Date: 20170830
  Serious: Yes (Death, Other)
  Sender: FDA-Public Use
  Company Number: JP-VIIV HEALTHCARE LIMITED-JP2016JPN183794

PATIENT
  Age: 44 Year
  Sex: Male

DRUGS (6)
  1. DOLUTEGRAVIR [Suspect]
     Active Substance: DOLUTEGRAVIR
     Indication: HIV INFECTION
     Dosage: 50 MG, 1D
     Route: 048
     Dates: start: 20140616, end: 20150401
  2. TRUVADA [Suspect]
     Active Substance: EMTRICITABINE\TENOFOVIR DISOPROXIL FUMARATE
     Indication: HIV INFECTION
     Dosage: 1 DF, 1D
     Route: 048
     Dates: start: 20120604, end: 20150401
  3. TRIAZOLAM. [Concomitant]
     Active Substance: TRIAZOLAM
     Indication: DRUG ABUSER
     Dosage: 0.5 MG, QD
     Dates: end: 20150401
  4. ZYPREXA [Concomitant]
     Active Substance: OLANZAPINE
     Indication: DRUG ABUSER
     Dosage: 5 MG, QD
     Dates: end: 20150401
  5. ETIZOLAM [Concomitant]
     Active Substance: ETIZOLAM
     Indication: DRUG ABUSER
     Dosage: 1 MG, TID
     Dates: end: 20150401
  6. FLUNITRAZEPAM [Concomitant]
     Active Substance: FLUNITRAZEPAM
     Indication: DRUG ABUSER
     Dosage: 2 MG, QD
     Dates: end: 20150401

REACTIONS (1)
  - Completed suicide [Fatal]

NARRATIVE: CASE EVENT DATE: 20150401
